FAERS Safety Report 7045719-1 (Version None)
Quarter: 2010Q4

REPORT INFORMATION
  Report Type: 
  Country: None (occurrence: None)
  Receive Date: 20101014
  Receipt Date: 20101004
  Transmission Date: 20110411
  Serious: Yes (Hospitalization, Other)
  Sender: FDA-Public Use
  Company Number: US-GENZYME-CLOF-1001127

PATIENT
  Sex: Female
  Weight: 44.9 kg

DRUGS (25)
  1. CLOFARABINE [Suspect]
     Indication: ACUTE LYMPHOCYTIC LEUKAEMIA
     Dosage: 57 MG, QD
     Route: 042
     Dates: start: 20100731, end: 20100803
  2. ETOPOSIDE [Suspect]
     Indication: ACUTE LYMPHOCYTIC LEUKAEMIA
     Dosage: 144 MG, QD
     Route: 042
     Dates: start: 20100801, end: 20100802
  3. CYCLOPHOSPHAMIDE [Suspect]
     Indication: ACUTE LYMPHOCYTIC LEUKAEMIA
     Dosage: 630 MG, QD
     Route: 042
     Dates: start: 20100801, end: 20100802
  4. VINCRISTINE [Suspect]
     Indication: ACUTE LYMPHOCYTIC LEUKAEMIA
     Dosage: 2 MG, QD
     Route: 042
     Dates: start: 20100816, end: 20100816
  5. VINCRISTINE [Suspect]
     Dosage: 2 MG, QD
     Route: 042
     Dates: start: 20100825, end: 20100825
  6. METHOTREXATE [Suspect]
     Indication: ACUTE LYMPHOCYTIC LEUKAEMIA
     Dosage: 15 MG, QD
     Route: 037
     Dates: start: 20100816, end: 20100816
  7. METHOTREXATE [Suspect]
     Dosage: UNK
     Route: 037
     Dates: start: 20100729, end: 20100729
  8. ALLOPURINOL [Concomitant]
     Indication: PRODUCT USED FOR UNKNOWN INDICATION
     Dosage: UNK
     Dates: start: 20100731
  9. ACYCLOVIR [Concomitant]
     Indication: PROPHYLAXIS
     Dosage: 800 MG, UNK
     Dates: start: 20100730
  10. CALCIUM CARBONATE [Concomitant]
     Indication: PRODUCT USED FOR UNKNOWN INDICATION
     Dosage: 500 MG, UNK
     Dates: start: 20100729, end: 20100812
  11. CEFEPIME [Concomitant]
     Indication: PYREXIA
     Dosage: 500 MG, UNK
     Dates: start: 20100809, end: 20100809
  12. CYTARABINE [Concomitant]
     Indication: PRODUCT USED FOR UNKNOWN INDICATION
     Dosage: 24 MG, ONCE
     Dates: start: 20100729, end: 20100729
  13. DIPHENHYDRAMINE [Concomitant]
     Indication: PRODUCT USED FOR UNKNOWN INDICATION
     Dosage: 40 MG, UNK
     Dates: start: 20100801
  14. DOCUSATE [Concomitant]
     Indication: PRODUCT USED FOR UNKNOWN INDICATION
     Dosage: 100 MG, UNK
     Dates: start: 20100809
  15. GENTAMICIN [Concomitant]
     Indication: PRODUCT USED FOR UNKNOWN INDICATION
     Dosage: 110 MG, UNK
     Dates: start: 20100808
  16. HYDROCORTISONE [Concomitant]
     Indication: PREMEDICATION
     Dosage: 45 MG, UNK
     Dates: start: 20100802, end: 20100804
  17. MEROPENEM [Concomitant]
     Indication: PRODUCT USED FOR UNKNOWN INDICATION
     Dosage: 900 MG, UNK
     Dates: start: 20100805
  18. ONDANSETRON [Concomitant]
     Indication: PRODUCT USED FOR UNKNOWN INDICATION
     Dosage: 8 MG, UNK
     Dates: start: 20100729
  19. OXYCODONE HCL [Concomitant]
     Indication: PRODUCT USED FOR UNKNOWN INDICATION
     Dosage: 2.5 MG, UNK
     Dates: start: 20100730, end: 20100808
  20. POLYETHYLENE GLYCOL [Concomitant]
     Indication: PRODUCT USED FOR UNKNOWN INDICATION
     Dosage: 17 G, UNK
     Dates: start: 20100809
  21. PROMETHAZINE [Concomitant]
     Indication: PRODUCT USED FOR UNKNOWN INDICATION
     Dosage: 12.5 MG, UNK
     Dates: start: 20100801, end: 20100803
  22. SCOPOLAMINE [Concomitant]
     Indication: PRODUCT USED FOR UNKNOWN INDICATION
     Dosage: 1 OTHER, UNK
     Dates: start: 20100801
  23. SULFAMETHOXAZOLE [Concomitant]
     Indication: PRODUCT USED FOR UNKNOWN INDICATION
     Dosage: 120 MG, UNK
     Dates: start: 20100802
  24. VORICONAZOLE [Concomitant]
     Indication: PROPHYLAXIS
     Dosage: 180 MG, UNK
     Dates: start: 20100805
  25. BACTRIM [Concomitant]
     Indication: PROPHYLAXIS

REACTIONS (2)
  - LEUKOENCEPHALOPATHY [None]
  - LIPASE INCREASED [None]
